FAERS Safety Report 24745465 (Version 1)
Quarter: 2024Q4

REPORT INFORMATION
  Report Type: Other
  Country: US (occurrence: US)
  Receive Date: 20241217
  Receipt Date: 20241217
  Transmission Date: 20250115
  Serious: No
  Sender: MERCK KGAA
  Company Number: US-Merck Healthcare KGaA-2024065714

PATIENT
  Age: 18 Year
  Sex: Male
  Weight: 68 kg

DRUGS (1)
  1. LEVOTHYROXINE [Suspect]
     Active Substance: LEVOTHYROXINE
     Indication: Congenital hypothyroidism

REACTIONS (1)
  - Treatment noncompliance [Recovered/Resolved]
